FAERS Safety Report 10241723 (Version 1)
Quarter: 2014Q2

REPORT INFORMATION
  Report Type: Spontaneous
  Country: US (occurrence: US)
  Receive Date: 20140617
  Receipt Date: 20140617
  Transmission Date: 20141212
  Serious: No
  Sender: FDA-Public Use
  Company Number: US-009507513-1406USA006615

PATIENT
  Age: 44 Year
  Sex: Female

DRUGS (2)
  1. SYLATRON [Suspect]
     Indication: PLATELET COUNT INCREASED
     Dosage: UNK
  2. IBUPROFEN [Concomitant]

REACTIONS (5)
  - Hot flush [Recovered/Resolved]
  - Influenza like illness [Recovered/Resolved]
  - Nausea [Recovered/Resolved]
  - Chills [Recovered/Resolved]
  - Vomiting [Recovered/Resolved]
